FAERS Safety Report 8848188 (Version 1)
Quarter: 2012Q4

REPORT INFORMATION
  Report Type: 
  Country: US (occurrence: US)
  Receive Date: 20121018
  Receipt Date: 20121018
  Transmission Date: 20130627
  Serious: Yes (Other)
  Sender: FDA-Public Use
  Company Number: US-PFIZER INC-2012255248

PATIENT
  Age: 31 Year
  Sex: Male
  Weight: 81.63 kg

DRUGS (1)
  1. VIAGRA [Suspect]
     Indication: ERECTILE DYSFUNCTION
     Dosage: UNK, as needed
     Dates: start: 20121012

REACTIONS (4)
  - Suspected counterfeit product [Not Recovered/Not Resolved]
  - Erection increased [Not Recovered/Not Resolved]
  - Product colour issue [Not Recovered/Not Resolved]
  - Penis disorder [Not Recovered/Not Resolved]
